FAERS Safety Report 19558714 (Version 2)
Quarter: 2021Q3

REPORT INFORMATION
  Report Type: Spontaneous
  Country: JP (occurrence: JP)
  Receive Date: 20210715
  Receipt Date: 20210729
  Transmission Date: 20211014
  Serious: Yes (Life-Threatening, Other)
  Sender: FDA-Public Use
  Company Number: JP-AMERICAN REGENT INC-2021001785

PATIENT
  Age: 87 Year
  Sex: Female

DRUGS (3)
  1. FERINJECT [Suspect]
     Active Substance: FERRIC CARBOXYMALTOSE
     Indication: IRON DEFICIENCY ANAEMIA
     Dosage: 500 MG (IN 100 ML OF 0.9% SODIUM CHLORIDE)
     Dates: start: 20210613, end: 20210613
  2. ROSUVASTATIN. [Concomitant]
     Active Substance: ROSUVASTATIN
     Indication: DYSLIPIDAEMIA
     Dosage: 2.5 MILLIGRAM, QD
     Route: 048
     Dates: start: 20210617, end: 20210620
  3. FERINJECT [Suspect]
     Active Substance: FERRIC CARBOXYMALTOSE
     Dosage: 500 MG (IN 100 ML OF 0.9% SODIUM CHLORIDE)
     Dates: start: 20210620, end: 20210620

REACTIONS (3)
  - Haemolytic anaemia [Recovering/Resolving]
  - Jaundice [Unknown]
  - Haematochezia [Unknown]

NARRATIVE: CASE EVENT DATE: 20210620
